FAERS Safety Report 5803920-6 (Version None)
Quarter: 2008Q3

REPORT INFORMATION
  Report Type: 
  Country: None (occurrence: None)
  Receive Date: 20080703
  Receipt Date: 20080620
  Transmission Date: 20090109
  Serious: Yes (Other)
  Sender: FDA-Public Use
  Company Number: ENT 2008-0081

PATIENT
  Age: 73 Year
  Sex: Female

DRUGS (13)
  1. COMTAN [Suspect]
     Indication: PARKINSON'S DISEASE
     Dosage: 400 MG (400 MG, 1 IN 1 D) ORAL
     Route: 048
     Dates: start: 20080331, end: 20080414
  2. SYMMETREL [Concomitant]
  3. MENEST [Concomitant]
  4. SIFROL [Concomitant]
  5. BLOPRESS [Concomitant]
  6. MAGLAX [Concomitant]
  7. MARZULENE [Concomitant]
  8. ALOSENN [Concomitant]
  9. TORSEMIDE [Concomitant]
  10. LOXONIN [Concomitant]
  11. LAXOBERON [Concomitant]
  12. TELEMINSOFT [Concomitant]
  13. WARFARIN SODIUM [Concomitant]

REACTIONS (1)
  - HALLUCINATION [None]
